FAERS Safety Report 8188206-X (Version None)
Quarter: 2012Q1

REPORT INFORMATION
  Report Type: 
  Country: None (occurrence: None)
  Receive Date: 20120306
  Receipt Date: 20120228
  Transmission Date: 20120608
  Serious: Yes (Hospitalization, Other)
  Sender: FDA-Public Use
  Company Number: US-ABBOTT-12P-163-0910288-00

PATIENT
  Sex: Female
  Weight: 86.26 kg

DRUGS (1)
  1. HUMIRA [Suspect]
     Indication: RHEUMATOID ARTHRITIS
     Dates: start: 20060101, end: 20111101

REACTIONS (8)
  - CONVULSION [None]
  - ASTHENIA [None]
  - TYMPANIC MEMBRANE PERFORATION [None]
  - FATIGUE [None]
  - LOSS OF CONSCIOUSNESS [None]
  - MENINGITIS [None]
  - ABNORMAL BEHAVIOUR [None]
  - DEAFNESS UNILATERAL [None]
